FAERS Safety Report 5976043-3 (Version None)
Quarter: 2008Q4

REPORT INFORMATION
  Report Type: 
  Country: None (occurrence: None)
  Receive Date: 20081124
  Receipt Date: 20080528
  Transmission Date: 20090506
  Serious: Yes (Hospitalization, Other)
  Sender: FDA-Public Use
  Company Number: 48835

PATIENT
  Sex: Male
  Weight: 99.7913 kg

DRUGS (2)
  1. AMIODARONE HCL [Suspect]
     Indication: CARDIAC OPERATION
     Dosage: IV
     Route: 042
     Dates: start: 20080228
  2. BLOOD THINNERS [Concomitant]

REACTIONS (2)
  - ABDOMINAL DISCOMFORT [None]
  - DYSPNOEA [None]
